FAERS Safety Report 16705755 (Version 1)
Quarter: 2019Q3

REPORT INFORMATION
  Report Type: Spontaneous
  Country: BR (occurrence: BR)
  Receive Date: 20190815
  Receipt Date: 20190815
  Transmission Date: 20191004
  Serious: Yes (Other)
  Sender: FDA-Public Use
  Company Number: BR-ASTRAZENECA-2019SF14167

PATIENT
  Age: 40 Year
  Sex: Female

DRUGS (6)
  1. FULVESTRANT. [Suspect]
     Active Substance: FULVESTRANT
     Indication: INVASIVE DUCTAL BREAST CARCINOMA
     Route: 030
  2. FULVESTRANT. [Suspect]
     Active Substance: FULVESTRANT
     Indication: MENOPAUSE
     Route: 030
  3. FULVESTRANT. [Suspect]
     Active Substance: FULVESTRANT
     Indication: INVASIVE DUCTAL BREAST CARCINOMA
     Route: 030
     Dates: start: 20181203
  4. PALBOCICLIB [Suspect]
     Active Substance: PALBOCICLIB
     Indication: MENOPAUSE
     Dosage: 125.0MG UNKNOWN
     Route: 048
     Dates: start: 20181206
  5. FULVESTRANT. [Suspect]
     Active Substance: FULVESTRANT
     Indication: MENOPAUSE
     Route: 030
     Dates: start: 20181203
  6. PALBOCICLIB [Suspect]
     Active Substance: PALBOCICLIB
     Indication: INVASIVE DUCTAL BREAST CARCINOMA
     Dosage: 125.0MG UNKNOWN
     Route: 048
     Dates: start: 20181206

REACTIONS (12)
  - Malignant neoplasm progression [Unknown]
  - Diarrhoea [Recovering/Resolving]
  - Leukopenia [Unknown]
  - Nausea [Recovering/Resolving]
  - Decreased appetite [Recovering/Resolving]
  - Gastrointestinal disorder [Unknown]
  - Platelet count decreased [Unknown]
  - Haemoglobin decreased [Unknown]
  - Fatigue [Recovering/Resolving]
  - Dyspepsia [Recovering/Resolving]
  - Vomiting [Recovering/Resolving]
  - Hepatotoxicity [Unknown]

NARRATIVE: CASE EVENT DATE: 20181209
